FAERS Safety Report 5443014-5 (Version None)
Quarter: 2007Q3

REPORT INFORMATION
  Report Type: 
  Country: None (occurrence: None)
  Receive Date: 20070905
  Receipt Date: 20070828
  Transmission Date: 20080115
  Serious: Yes (Hospitalization)
  Sender: FDA-Public Use
  Company Number: PHRM2007FR02101

PATIENT
  Age: 56 Year
  Sex: Female

DRUGS (4)
  1. LEPONEX [Suspect]
     Indication: SCHIZOPHRENIA
     Dosage: UNTIL 200 MG/DAY
     Route: 048
     Dates: start: 20070525, end: 20070611
  2. LYSANXIA [Concomitant]
     Dosage: 10 MG, QD
     Route: 048
  3. LERCAN [Concomitant]
     Dosage: 10 MG, QD
     Route: 048
  4. PARKINANE [Concomitant]
     Dosage: 5 MG, BID
     Route: 048

REACTIONS (7)
  - ALANINE AMINOTRANSFERASE INCREASED [None]
  - BLOOD LACTATE DEHYDROGENASE INCREASED [None]
  - C-REACTIVE PROTEIN INCREASED [None]
  - HYPERTHERMIA [None]
  - INFLAMMATION [None]
  - LIPASE INCREASED [None]
  - RED BLOOD CELL SEDIMENTATION RATE INCREASED [None]
